FAERS Safety Report 14923611 (Version 2)
Quarter: 2018Q3

REPORT INFORMATION
  Report Type: Spontaneous
  Country: US (occurrence: US)
  Receive Date: 20180522
  Receipt Date: 20180702
  Transmission Date: 20181010
  Serious: Yes (Death, Other)
  Sender: FDA-Public Use
  Company Number: US-ASTRAZENECA-2018SE65576

PATIENT
  Age: 31026 Day
  Sex: Female
  Weight: 51 kg

DRUGS (22)
  1. SYMBICORT [Concomitant]
     Active Substance: BUDESONIDE\FORMOTEROL FUMARATE DIHYDRATE
  2. NEXIUM 24HR [Suspect]
     Active Substance: ESOMEPRAZOLE MAGNESIUM
     Route: 048
     Dates: start: 2001, end: 2016
  3. NEXIUM [Suspect]
     Active Substance: ESOMEPRAZOLE MAGNESIUM
     Indication: GASTROOESOPHAGEAL REFLUX DISEASE
     Route: 048
     Dates: start: 2001, end: 2016
  4. NEXIUM [Suspect]
     Active Substance: ESOMEPRAZOLE MAGNESIUM
     Indication: GASTROOESOPHAGEAL REFLUX DISEASE
     Route: 048
     Dates: start: 20110218
  5. FOSINOPRIL [Concomitant]
     Active Substance: FOSINOPRIL
  6. PREDNISOLONE. [Concomitant]
     Active Substance: PREDNISOLONE
  7. PREDNISONE. [Concomitant]
     Active Substance: PREDNISONE
  8. NEXIUM [Suspect]
     Active Substance: ESOMEPRAZOLE MAGNESIUM
     Indication: GASTROOESOPHAGEAL REFLUX DISEASE
     Route: 048
     Dates: start: 1997, end: 2016
  9. SPIRIVA [Concomitant]
     Active Substance: TIOTROPIUM BROMIDE MONOHYDRATE
  10. APAP CODEINE [Concomitant]
  11. METOPROLOL. [Concomitant]
     Active Substance: METOPROLOL
  12. CHLORTHALID [Concomitant]
  13. LOVASTATIN. [Concomitant]
     Active Substance: LOVASTATIN
  14. FUROSEMIDE. [Concomitant]
     Active Substance: FUROSEMIDE
  15. AMLODIPINE [Concomitant]
     Active Substance: AMLODIPINE BESYLATE
  16. CEPHALEXIN. [Concomitant]
     Active Substance: CEPHALEXIN
  17. HYDRALAZINE [Concomitant]
     Active Substance: HYDRALAZINE HYDROCHLORIDE
  18. PREDNISOLONE. [Concomitant]
     Active Substance: PREDNISOLONE
  19. HUMULIN N [Concomitant]
     Active Substance: INSULIN HUMAN
  20. HYDROCODONE BITARTRATE AND ACETAMINOPHEN [Concomitant]
     Active Substance: ACETAMINOPHEN\HYDROCODONE BITARTRATE
  21. ATENOLOL. [Concomitant]
     Active Substance: ATENOLOL
  22. PROAIR HFA [Concomitant]
     Active Substance: ALBUTEROL SULFATE

REACTIONS (4)
  - Acute kidney injury [Recovering/Resolving]
  - Renal failure [Unknown]
  - Death [Fatal]
  - Chronic kidney disease [Not Recovered/Not Resolved]

NARRATIVE: CASE EVENT DATE: 20150401
